FAERS Safety Report 23145162 (Version 2)
Quarter: 2023Q4

REPORT INFORMATION
  Report Type: Spontaneous
  Country: US (occurrence: US)
  Receive Date: 20231103
  Receipt Date: 20231108
  Transmission Date: 20240110
  Serious: Yes (Hospitalization)
  Sender: FDA-Public Use
  Company Number: US-CHIESI-2023CHF05730

PATIENT
  Age: 3 Day
  Sex: Male

DRUGS (6)
  1. CUROSURF [Suspect]
     Active Substance: PORACTANT ALFA
     Indication: Neonatal respiratory distress syndrome
     Dosage: 2.5 MILLILITRE PER KILOGRAM
     Route: 007
     Dates: start: 20230926, end: 20230926
  2. CUROSURF [Suspect]
     Active Substance: PORACTANT ALFA
     Dosage: 1.25 MILLILITRE PER KILOGRAM
     Route: 007
     Dates: start: 20230928, end: 20230928
  3. INTRALIPID [Concomitant]
     Active Substance: EGG PHOSPHOLIPIDS\GLYCERIN\SOYBEAN OIL
     Indication: Product used for unknown indication
     Dosage: UNK
  4. AMPICILLIN [Concomitant]
     Active Substance: AMPICILLIN
     Indication: Product used for unknown indication
     Dosage: UNK
  5. GENTAMICIN [Concomitant]
     Active Substance: GENTAMICIN
     Indication: Product used for unknown indication
     Dosage: UNK
  6. CAFFEINE [Concomitant]
     Active Substance: CAFFEINE
     Indication: Product used for unknown indication
     Dosage: UNK

REACTIONS (5)
  - Neonatal respiratory acidosis [Unknown]
  - Endotracheal intubation complication [Unknown]
  - Pulmonary haemorrhage neonatal [Recovered/Resolved]
  - Off label use [Recovered/Resolved]
  - Oxygen consumption increased [Unknown]

NARRATIVE: CASE EVENT DATE: 20230901
